FAERS Safety Report 9121313 (Version 2)
Quarter: 2013Q2

REPORT INFORMATION
  Report Type: Spontaneous
  Country: ES (occurrence: ES)
  Receive Date: 20130225
  Receipt Date: 20130520
  Transmission Date: 20140414
  Serious: Yes (Hospitalization, Other)
  Sender: FDA-Public Use
  Company Number: ES-BRISTOL-MYERS SQUIBB COMPANY-17107897

PATIENT
  Age: 81 Year
  Sex: Female

DRUGS (1)
  1. DASATINIB [Suspect]
     Indication: CHRONIC MYELOID LEUKAEMIA
     Dates: start: 200505, end: 201206

REACTIONS (9)
  - Pulmonary hypertension [Recovering/Resolving]
  - Right ventricular failure [Recovering/Resolving]
  - Pleural effusion [Recovered/Resolved]
  - Malaise [Unknown]
  - Oedema peripheral [Recovered/Resolved]
  - Rales [Unknown]
  - Disorientation [Unknown]
  - Agitation [Unknown]
  - Dyspnoea [Unknown]
